FAERS Safety Report 9041174 (Version 1)
Quarter: 2013Q1

REPORT INFORMATION
  Report Type: Spontaneous
  Country: US (occurrence: None)
  Receive Date: 20130123
  Receipt Date: 20130123
  Transmission Date: 20140127
  Serious: Yes (Disabling)
  Sender: FDA-Public Use
  Company Number: None

PATIENT
  Age: 63 Year
  Sex: Female
  Weight: 72.58 kg

DRUGS (1)
  1. XIAFLEX [Suspect]
     Dosage: .09   1-IN 5 AREAS IN 1 DAY

REACTIONS (4)
  - Pain in extremity [None]
  - Burning sensation [None]
  - Local swelling [None]
  - Laceration [None]
